FAERS Safety Report 7480291-3 (Version None)
Quarter: 2011Q2

REPORT INFORMATION
  Report Type: 
  Country: None (occurrence: None)
  Receive Date: 20110513
  Receipt Date: 20110513
  Transmission Date: 20111010
  Serious: Yes (Life-Threatening, Other)
  Sender: FDA-Public Use
  Company Number: None

PATIENT
  Age: 49 Year
  Sex: Male
  Weight: 108.8633 kg

DRUGS (1)
  1. ALCOHOL SWAB [Suspect]
     Indication: WOUND

REACTIONS (4)
  - PRODUCT CONTAMINATION MICROBIAL [None]
  - SKIN INFECTION [None]
  - IMPAIRED HEALING [None]
  - PRODUCT QUALITY ISSUE [None]
